FAERS Safety Report 5490878-5 (Version None)
Quarter: 2007Q4

REPORT INFORMATION
  Report Type: 
  Country: None (occurrence: None)
  Receive Date: 20071019
  Receipt Date: 20071012
  Transmission Date: 20080405
  Serious: Yes (Hospitalization)
  Sender: FDA-Public Use
  Company Number: BE-AVENTIS-200719436GDDC

PATIENT
  Age: 46 Year
  Sex: Male

DRUGS (3)
  1. TAXOTERE [Suspect]
     Route: 042
     Dates: start: 20070604, end: 20070604
  2. CISPLATIN [Suspect]
     Route: 042
     Dates: start: 20070604, end: 20070604
  3. FLUOROURACIL [Suspect]
     Dosage: DOSE: 75 FOR 5 DAYS (DAY 1 TO DAY 5)
     Route: 042
     Dates: start: 20070604, end: 20070609

REACTIONS (4)
  - FEBRILE NEUTROPENIA [None]
  - FOLLICULITIS [None]
  - HYPOKALAEMIA [None]
  - STOMATITIS [None]
